FAERS Safety Report 10974690 (Version 1)
Quarter: 2015Q1

REPORT INFORMATION
  Report Type: Spontaneous
  Country: US (occurrence: None)
  Receive Date: 20150226
  Receipt Date: 20150226
  Transmission Date: 20150721
  Serious: Yes (Other)
  Sender: FDA-Public Use
  Company Number: TPA2009A01286

PATIENT
  Age: 72 Year
  Sex: Male
  Weight: 69.85 kg

DRUGS (4)
  1. ULORIC [Suspect]
     Active Substance: FEBUXOSTAT
     Indication: GOUT
     Route: 048
     Dates: start: 20090513, end: 20090526
  2. HEPARIN [Suspect]
     Active Substance: HEPARIN SODIUM
     Dosage: GTT, INTRAVENOUS
     Route: 042
     Dates: start: 20090513, end: 20090516
  3. VOLTAREN GEL (DICLOFENAC DIETHYLAMINE) [Concomitant]
  4. LINEZOLID (LINEZOLID) [Suspect]
     Active Substance: LINEZOLID
     Route: 048
     Dates: end: 20090519

REACTIONS (1)
  - Platelet count decreased [None]

NARRATIVE: CASE EVENT DATE: 20090517
